FAERS Safety Report 18632791 (Version 2)
Quarter: 2020Q4

REPORT INFORMATION
  Report Type: Report from Study
  Country: KR (occurrence: KR)
  Receive Date: 20201218
  Receipt Date: 20201228
  Transmission Date: 20210114
  Serious: Yes (Hospitalization)
  Sender: FDA-Public Use
  Company Number: KR-ROCHE-2732751

PATIENT
  Age: 47 Year
  Sex: Female
  Weight: 43 kg

DRUGS (6)
  1. ATEZOLIZUMAB. [Suspect]
     Active Substance: ATEZOLIZUMAB
     Indication: COLORECTAL CANCER METASTATIC
     Route: 041
     Dates: start: 20201202
  2. TYLENOL [Concomitant]
     Active Substance: ACETAMINOPHEN
     Dates: start: 20201210, end: 20201212
  3. TAZOPERAN [Concomitant]
     Dates: start: 20201214, end: 20201215
  4. NAXEN-F [Concomitant]
     Dates: start: 20201214, end: 20201214
  5. TYLENOL [Concomitant]
     Active Substance: ACETAMINOPHEN
     Dates: start: 20201203, end: 20201204
  6. SUPRAX CAPSULES [Concomitant]
     Dates: start: 20201214, end: 20201214

REACTIONS (2)
  - Pyrexia [Recovered/Resolved]
  - Hypotension [Recovered/Resolved]

NARRATIVE: CASE EVENT DATE: 20201212
